FAERS Safety Report 5219118-9 (Version None)
Quarter: 2007Q1

REPORT INFORMATION
  Report Type: 
  Country: None (occurrence: None)
  Receive Date: 20061121
  Receipt Date: 20060911
  Transmission Date: 20070707
  Serious: No
  Sender: FDA-Public Use
  Company Number: TPA2006A01555

PATIENT
  Age: 65 Year
  Sex: Male
  Weight: 77.1115 kg

DRUGS (4)
  1. ROZEREM [Suspect]
     Indication: FEAR
     Dosage: 8 MG, HS, PER ORAL
     Route: 048
     Dates: start: 20060910
  2. ROZEREM [Suspect]
     Indication: INSOMNIA
     Dosage: 8 MG, HS, PER ORAL
     Route: 048
     Dates: start: 20060910
  3. ACCUPRIL (QUINAPRIL HYDROCHLORIDE) (5 MILLIGRAM, TABLETS) [Concomitant]
  4. AMBIEN [Concomitant]

REACTIONS (3)
  - INITIAL INSOMNIA [None]
  - MIDDLE INSOMNIA [None]
  - SEDATION [None]
